FAERS Safety Report 7792968-0 (Version None)
Quarter: 2011Q4

REPORT INFORMATION
  Report Type: 
  Country: None (occurrence: None)
  Receive Date: 20111003
  Receipt Date: 20110928
  Transmission Date: 20120403
  Serious: Yes (Hospitalization, Other)
  Sender: FDA-Public Use
  Company Number: PHEH2011US04790

PATIENT
  Sex: Male

DRUGS (3)
  1. EXJADE [Suspect]
     Dosage: 1500 MG, QD
     Route: 048
     Dates: start: 20110816
  2. ZYTIGA [Concomitant]
     Dosage: UNK UKN, QD
  3. EXJIVA [Concomitant]
     Dosage: UNK UKN, QMO

REACTIONS (7)
  - NAUSEA [None]
  - DIARRHOEA [None]
  - BLADDER OBSTRUCTION [None]
  - RENAL IMPAIRMENT [None]
  - PYREXIA [None]
  - FATIGUE [None]
  - VOMITING [None]
